FAERS Safety Report 21536918 (Version 1)
Quarter: 2022Q4

REPORT INFORMATION
  Report Type: Spontaneous
  Country: US (occurrence: None)
  Receive Date: 20221101
  Receipt Date: 20221101
  Transmission Date: 20230113
  Serious: Yes (Other)
  Sender: FDA-Public Use
  Company Number: None

PATIENT
  Age: 82 Year
  Sex: Male
  Weight: 67.5 kg

DRUGS (5)
  1. DEXTROMETHORPHAN\PROMETHAZINE [Suspect]
     Active Substance: DEXTROMETHORPHAN\PROMETHAZINE
     Indication: Cough
     Dosage: OTHER QUANTITY : 2 TEASPOON(S);?FREQUENCY : 4 TIMES A DAY;?
     Route: 048
     Dates: start: 20221017, end: 20221019
  2. LISINOPRIL [Concomitant]
     Active Substance: LISINOPRIL
  3. DILTIAZEM CD [Concomitant]
  4. FINASTERIDE [Concomitant]
  5. VITAMINS [Concomitant]
     Active Substance: VITAMINS

REACTIONS (4)
  - Musculoskeletal stiffness [None]
  - Pain in extremity [None]
  - Pain in extremity [None]
  - Hyperhidrosis [None]

NARRATIVE: CASE EVENT DATE: 20221018
